FAERS Safety Report 10051454 (Version 1)
Quarter: 2014Q2

REPORT INFORMATION
  Report Type: Spontaneous
  Country: JP (occurrence: JP)
  Receive Date: 20140401
  Receipt Date: 20140401
  Transmission Date: 20141212
  Serious: Yes (Hospitalization)
  Sender: FDA-Public Use
  Company Number: JP-CELGENEUS-087-21660-14034449

PATIENT
  Age: 76 Year
  Sex: Male

DRUGS (4)
  1. ABRAXANE [Suspect]
     Indication: LUNG NEOPLASM MALIGNANT
     Dosage: 170 MILLIGRAM
     Route: 041
     Dates: start: 20140108
  2. ABRAXANE [Suspect]
     Dosage: 170 MILLIGRAM
     Route: 041
     Dates: start: 20140115
  3. ABRAXANE [Suspect]
     Dosage: 170 MILLIGRAM
     Route: 041
     Dates: start: 20140122
  4. ABRAXANE [Suspect]
     Dosage: 170 MILLIGRAM
     Route: 041
     Dates: start: 20140219, end: 20140219

REACTIONS (1)
  - Lung disorder [Recovering/Resolving]
